FAERS Safety Report 23657784 (Version 2)
Quarter: 2024Q2

REPORT INFORMATION
  Report Type: Report from Study
  Country: CA (occurrence: CA)
  Receive Date: 20240321
  Receipt Date: 20240404
  Transmission Date: 20240716
  Serious: Yes (Death, Hospitalization, Other)
  Sender: FDA-Public Use
  Company Number: CA-BAYER-2023A057999

PATIENT
  Sex: Female

DRUGS (2)
  1. EYLEA [Suspect]
     Active Substance: AFLIBERCEPT
     Indication: Neovascular age-related macular degeneration
     Dosage: DOSAGE AND FREQ UNK, PT. RECEIVED 6 INJ OF EYLEA IN TOTAL PRIOR STROKE, SOL FOR INJ, 40MG/ML
     Dates: start: 20220929
  2. EYLEA [Suspect]
     Active Substance: AFLIBERCEPT
     Dosage: 1 DF, ONCE, LAST EYLEA INJ PRIOR TO THE EVENT STROKE, SOL FOR INJ, 40 MG/ML
     Dates: start: 20230306, end: 20230306

REACTIONS (3)
  - Death [Fatal]
  - Hospitalisation [Unknown]
  - Cerebrovascular accident [Recovering/Resolving]

NARRATIVE: CASE EVENT DATE: 20240315
